FAERS Safety Report 8586835-2 (Version None)
Quarter: 2012Q3

REPORT INFORMATION
  Report Type: 
  Country: None (occurrence: None)
  Receive Date: 20120810
  Receipt Date: 20120803
  Transmission Date: 20120928
  Serious: Yes (Hospitalization, Disabling, Other)
  Sender: FDA-Public Use
  Company Number: US-009507513-1203USA03375

PATIENT

DRUGS (6)
  1. MINERALS (UNSPECIFIED) [Concomitant]
     Dates: start: 19990101, end: 20090101
  2. FOSAMAX [Suspect]
     Indication: OSTEOPOROSIS
     Dosage: 70 MG, QW
     Route: 048
     Dates: start: 20060329
  3. VITAMIN D [Concomitant]
     Dates: start: 19990101, end: 20090101
  4. FOSAMAX [Suspect]
     Indication: OSTEOPENIA
     Dosage: 70 MG, QW
     Route: 048
     Dates: start: 20090701
  5. FOSAMAX [Suspect]
     Dosage: 70 MG, QW
     Route: 048
     Dates: start: 20090103
  6. MULTI-VITAMINS [Concomitant]
     Dates: start: 19990101, end: 20090101

REACTIONS (61)
  - ADVERSE EVENT [None]
  - ENTEROBACTER INFECTION [None]
  - BRONCHIAL HYPERREACTIVITY [None]
  - VENOUS INSUFFICIENCY [None]
  - HYPOXIA [None]
  - FLUID RETENTION [None]
  - DECUBITUS ULCER [None]
  - ANAEMIA OF CHRONIC DISEASE [None]
  - ANAEMIA [None]
  - ESSENTIAL HYPERTENSION [None]
  - TACHYCARDIA [None]
  - WOUND INFECTION STAPHYLOCOCCAL [None]
  - INADEQUATE DIET [None]
  - CELLULITIS [None]
  - BLADDER DISORDER [None]
  - INCREASED TENDENCY TO BRUISE [None]
  - SENSITIVITY OF TEETH [None]
  - PNEUMONIA STAPHYLOCOCCAL [None]
  - BACK DISORDER [None]
  - HEART VALVE INCOMPETENCE [None]
  - FALL [None]
  - ANGINA PECTORIS [None]
  - FEMUR FRACTURE [None]
  - CHONDROCALCINOSIS [None]
  - THROMBOCYTOPENIA [None]
  - SURGICAL FAILURE [None]
  - RENAL FAILURE CHRONIC [None]
  - OEDEMA PERIPHERAL [None]
  - DIABETES MELLITUS INADEQUATE CONTROL [None]
  - DRY SKIN [None]
  - BLADDER PAIN [None]
  - DENTAL CARIES [None]
  - DRUG HYPERSENSITIVITY [None]
  - CHEST PAIN [None]
  - PULMONARY CONGESTION [None]
  - EYE DISORDER [None]
  - URINARY RETENTION [None]
  - CHRONIC OBSTRUCTIVE PULMONARY DISEASE [None]
  - HAEMORRHAGIC ANAEMIA [None]
  - TRACHEOBRONCHITIS [None]
  - IMPAIRED HEALING [None]
  - BLADDER SPASM [None]
  - ANXIETY [None]
  - TOOTH DISORDER [None]
  - DYSLIPIDAEMIA [None]
  - BLOOD CHOLESTEROL INCREASED [None]
  - LOW TURNOVER OSTEOPATHY [None]
  - HYPOTENSION [None]
  - DEPRESSION [None]
  - ASTHENIA [None]
  - MUSCULOSKELETAL CHEST PAIN [None]
  - PERIPHERAL VASCULAR DISORDER [None]
  - HYPERLIPIDAEMIA [None]
  - DIABETIC GASTROPARESIS [None]
  - ASTHMA [None]
  - RENAL FAILURE [None]
  - HYPOGLYCAEMIA [None]
  - CARDIAC FAILURE CONGESTIVE [None]
  - GASTRITIS [None]
  - POSTOPERATIVE WOUND COMPLICATION [None]
  - CHONDROCALCINOSIS PYROPHOSPHATE [None]
